FAERS Safety Report 16361243 (Version 4)
Quarter: 2019Q3

REPORT INFORMATION
  Report Type: Report from Study
  Country: GB (occurrence: GB)
  Receive Date: 20190528
  Receipt Date: 20190906
  Transmission Date: 20191004
  Serious: Yes (Hospitalization)
  Sender: FDA-Public Use
  Company Number: PHHY2018GB188128

PATIENT
  Age: 41 Year
  Sex: Female
  Weight: 96 kg

DRUGS (3)
  1. COSENTYX [Suspect]
     Active Substance: SECUKINUMAB
     Indication: PSORIATIC ARTHROPATHY
     Dosage: 300 MG, QMO
     Route: 058
     Dates: start: 20181103, end: 20190517
  2. ENSTILAR [Concomitant]
     Active Substance: BETAMETHASONE DIPROPIONATE\CALCIPOTRIENE HYDRATE
     Indication: PRODUCT USED FOR UNKNOWN INDICATION
     Route: 065
  3. COSENTYX [Suspect]
     Active Substance: SECUKINUMAB
     Indication: PSORIASIS
     Dosage: 300 MG, QMO
     Route: 058
     Dates: start: 20180618

REACTIONS (10)
  - Psoriasis [Unknown]
  - Dermatitis exfoliative [Recovered/Resolved]
  - Feeling hot [Unknown]
  - Hypersensitivity [Unknown]
  - Swelling face [Recovered/Resolved]
  - Angioedema [Recovered/Resolved]
  - Erythema [Unknown]
  - Pruritus [Unknown]
  - Malaise [Unknown]
  - Eczema [Unknown]

NARRATIVE: CASE EVENT DATE: 20190515
